FAERS Safety Report 10457271 (Version 2)
Quarter: 2014Q3

REPORT INFORMATION
  Report Type: Spontaneous
  Country: NO (occurrence: NO)
  Receive Date: 20140916
  Receipt Date: 20140925
  Transmission Date: 20150326
  Serious: Yes (Death, Other)
  Sender: FDA-Public Use
  Company Number: NO-BRISTOL-MYERS SQUIBB COMPANY-21397708

PATIENT
  Age: 42 Year
  Sex: Male

DRUGS (2)
  1. ABILIFY [Suspect]
     Active Substance: ARIPIPRAZOLE
     Indication: SCHIZOPHRENIA
     Dosage: LAST DOSE ON JUN2013
     Route: 048
     Dates: start: 200803
  2. VENLAFAXINE HCL [Concomitant]
     Active Substance: VENLAFAXINE HYDROCHLORIDE
     Indication: DEPRESSION

REACTIONS (2)
  - Syncope [Unknown]
  - Hypertrophic cardiomyopathy [Fatal]

NARRATIVE: CASE EVENT DATE: 201211
